FAERS Safety Report 14465530 (Version 1)
Quarter: 2018Q1

REPORT INFORMATION
  Report Type: Spontaneous
  Country: US (occurrence: US)
  Receive Date: 20180131
  Receipt Date: 20180131
  Transmission Date: 20180509
  Serious: Yes (Other)
  Sender: FDA-Public Use
  Company Number: US-BRISTOL-MYERS SQUIBB COMPANY-BMS-2018-004357

PATIENT
  Age: 95 Year
  Sex: Female
  Weight: 62.14 kg

DRUGS (1)
  1. WARFARIN SODIUM. [Suspect]
     Active Substance: WARFARIN SODIUM
     Indication: VENA CAVA THROMBOSIS
     Dosage: UNK, QD
     Route: 048
     Dates: start: 201708

REACTIONS (1)
  - Dementia [Unknown]
